FAERS Safety Report 9614906 (Version 1)
Quarter: 2013Q4

REPORT INFORMATION
  Report Type: Spontaneous
  Country: US (occurrence: US)
  Receive Date: 20131011
  Receipt Date: 20131011
  Transmission Date: 20140711
  Serious: No
  Sender: FDA-Public Use
  Company Number: US-PURDUE-USA-2013-0097654

PATIENT
  Sex: Female

DRUGS (3)
  1. BUTRANS [Suspect]
     Indication: PAIN
     Dosage: UNK
     Route: 062
  2. OXYCODONE HYDROCHLORIDE (SIMILAR TO NDA 22-272) [Suspect]
     Indication: DRUG WITHDRAWAL SYNDROME
     Dosage: UNK
     Route: 048
  3. SUBOXONE [Concomitant]
     Indication: DRUG WITHDRAWAL SYNDROME

REACTIONS (1)
  - Drug withdrawal syndrome [Unknown]
